FAERS Safety Report 9658161 (Version 1)
Quarter: 2013Q4

REPORT INFORMATION
  Report Type: Spontaneous
  Country: US (occurrence: US)
  Receive Date: 20131030
  Receipt Date: 20131030
  Transmission Date: 20140711
  Serious: No
  Sender: FDA-Public Use
  Company Number: US-PURDUE-USA-2012-0080450

PATIENT
  Sex: 0

DRUGS (2)
  1. OXYCODONE HYDROCHLORIDE (SIMILAR TO NDA 22-272) [Suspect]
     Indication: ANALGESIC THERAPY
  2. HYDROCODONE FILM-COATED TAB (59,175) [Suspect]
     Indication: ANALGESIC THERAPY

REACTIONS (2)
  - Insomnia [Unknown]
  - Inadequate analgesia [Unknown]
